FAERS Safety Report 7227227-8 (Version None)
Quarter: 2011Q1

REPORT INFORMATION
  Report Type: 
  Country: None (occurrence: None)
  Receive Date: 20110114
  Receipt Date: 20110103
  Transmission Date: 20110831
  Serious: Yes (Death, Congenital Anomaly)
  Sender: FDA-Public Use
  Company Number: A0871456A

PATIENT

DRUGS (1)
  1. PAXIL [Suspect]

REACTIONS (3)
  - DEXTROCARDIA [None]
  - DEATH [None]
  - DRUG EXPOSURE DURING PREGNANCY [None]
